FAERS Safety Report 10538537 (Version 2)
Quarter: 2014Q4

REPORT INFORMATION
  Report Type: Spontaneous
  Country: US (occurrence: US)
  Receive Date: 20141023
  Receipt Date: 20141023
  Transmission Date: 20150529
  Serious: Yes (Hospitalization, Other)
  Sender: FDA-Public Use
  Company Number: US-GLAXOSMITHKLINE-A0785967A

PATIENT
  Sex: Female
  Weight: 170 kg

DRUGS (2)
  1. ROSIGLITAZONE MALEATE. [Suspect]
     Active Substance: ROSIGLITAZONE MALEATE
     Indication: DIABETES MELLITUS
     Dosage: 2 MG, UNK
     Dates: start: 20070318
  2. AVANDAMET [Suspect]
     Active Substance: METFORMIN HYDROCHLORIDE\ROSIGLITAZONE MALEATE
     Indication: TYPE 2 DIABETES MELLITUS
     Dosage: 2MG/500MG
     Route: 048
     Dates: start: 20010101, end: 20070608

REACTIONS (4)
  - Myocardial infarction [Not Recovered/Not Resolved]
  - Acute coronary syndrome [Unknown]
  - Cardiac failure congestive [Unknown]
  - Angina unstable [Unknown]
